FAERS Safety Report 6590899-5 (Version None)
Quarter: 2010Q1

REPORT INFORMATION
  Report Type: 
  Country: None (occurrence: None)
  Receive Date: 20100219
  Receipt Date: 20100212
  Transmission Date: 20100710
  Serious: Yes (Hospitalization)
  Sender: FDA-Public Use
  Company Number: DE-JNJFOC-20100202564

PATIENT
  Sex: Male
  Weight: 45 kg

DRUGS (2)
  1. RISPERDAL [Suspect]
     Indication: ACCIDENTAL EXPOSURE
     Route: 048
     Dates: start: 20100203, end: 20100203
  2. AMISULPRID [Suspect]
     Indication: ACCIDENTAL EXPOSURE
     Route: 048
     Dates: start: 20100203, end: 20100203

REACTIONS (5)
  - ACCIDENTAL EXPOSURE [None]
  - ANGINA PECTORIS [None]
  - DIPLOPIA [None]
  - FATIGUE [None]
  - NECK PAIN [None]
